FAERS Safety Report 15516111 (Version 1)
Quarter: 2018Q4

REPORT INFORMATION
  Report Type: Report from Study
  Country: GB (occurrence: GB)
  Receive Date: 20181017
  Receipt Date: 20181017
  Transmission Date: 20190205
  Serious: No
  Sender: FDA-Public Use
  Company Number: GB-IPSEN BIOPHARMACEUTICALS, INC.-2018-15568

PATIENT
  Sex: Female

DRUGS (2)
  1. SOMATULINE LA [Suspect]
     Active Substance: LANREOTIDE ACETATE
     Indication: PRODUCT USED FOR UNKNOWN INDICATION
     Dosage: SOMATULINE 120MG AUTOGEL PRE-FILLED SYRINGE
     Route: 058
  2. SOMATULINE LA [Suspect]
     Active Substance: LANREOTIDE ACETATE
     Dosage: SOMATULINE 120MG AUTOGEL PRE-FILLED SYRINGE
     Route: 058

REACTIONS (2)
  - Disease progression [Unknown]
  - Incorrect product administration duration [Unknown]
